FAERS Safety Report 10758665 (Version 1)
Quarter: 2015Q1

REPORT INFORMATION
  Report Type: Spontaneous
  Country: US (occurrence: None)
  Receive Date: 20150123
  Receipt Date: 20150123
  Transmission Date: 20150721
  Serious: No
  Sender: FDA-Public Use
  Company Number: 2014TUS008991

PATIENT
  Age: 68 Year
  Sex: Female
  Weight: 112.5 kg

DRUGS (4)
  1. ENTYVIO [Suspect]
     Active Substance: VEDOLIZUMAB
     Indication: CROHN^S DISEASE
     Dosage: 300 MG, FIRST DOSE, INTRAVENOUS
     Route: 042
     Dates: start: 20140903, end: 20140903
  2. LANSOPRAZOLE. [Concomitant]
     Active Substance: LANSOPRAZOLE
  3. COREG [Concomitant]
     Active Substance: CARVEDILOL
  4. LOSARTAN + HIDROCLOROTIAZIDA (HYDROCHLOROTHIAZIDE, LOSARTAN) [Concomitant]

REACTIONS (1)
  - Arthralgia [None]

NARRATIVE: CASE EVENT DATE: 20140903
